FAERS Safety Report 23857706 (Version 2)
Quarter: 2025Q2

REPORT INFORMATION
  Report Type: Spontaneous
  Country: US (occurrence: US)
  Receive Date: 20240515
  Receipt Date: 20250410
  Transmission Date: 20250717
  Serious: No
  Sender: KINIKSA PHARMACEUTICALS
  Company Number: US-Kiniksa Pharmaceuticals Ltd.-2023KPU000915

PATIENT
  Age: 65 Year
  Sex: Female

DRUGS (1)
  1. ARCALYST [Suspect]
     Active Substance: RILONACEPT
     Indication: Pericardial disease
     Dosage: 2.3 ML
     Route: 058
     Dates: start: 202307

REACTIONS (14)
  - Injection site pruritus [Unknown]
  - Rash [Recovered/Resolved]
  - Skin disorder [Unknown]
  - Skin discolouration [Unknown]
  - Dysphonia [Unknown]
  - Arthralgia [Unknown]
  - Hyperhidrosis [Unknown]
  - Skin pressure mark [Recovered/Resolved]
  - Fall [Recovered/Resolved]
  - Unresponsive to stimuli [Recovered/Resolved]
  - Victim of abuse [Unknown]
  - Substance use [Unknown]
  - Nervousness [Unknown]
  - Fear of death [Recovered/Resolved]

NARRATIVE: CASE EVENT DATE: 20230101
